FAERS Safety Report 6224618-9 (Version None)
Quarter: 2009Q2

REPORT INFORMATION
  Report Type: 
  Country: None (occurrence: None)
  Receive Date: 20090612
  Receipt Date: 20090324
  Transmission Date: 20091009
  Serious: No
  Sender: FDA-Public Use
  Company Number: US-ABBOTT-09P-163-0564209-00

PATIENT
  Sex: Female
  Weight: 113.5 kg

DRUGS (10)
  1. HUMIRA [Suspect]
     Indication: RHEUMATOID ARTHRITIS
     Route: 058
     Dates: start: 20080301, end: 20081201
  2. HUMIRA [Suspect]
  3. METHOTREXATE [Concomitant]
     Indication: DRUG USE FOR UNKNOWN INDICATION
  4. PEROXETINE [Concomitant]
     Indication: DRUG USE FOR UNKNOWN INDICATION
  5. OMEPRAZOLE [Concomitant]
     Indication: GASTRIC DISORDER
  6. FOLIC ACID [Concomitant]
     Indication: DRUG USE FOR UNKNOWN INDICATION
  7. ESTRADIOL [Concomitant]
     Indication: DRUG USE FOR UNKNOWN INDICATION
  8. LEVOTHYROXINE [Concomitant]
     Indication: DRUG USE FOR UNKNOWN INDICATION
  9. MOBIC [Concomitant]
     Indication: DRUG USE FOR UNKNOWN INDICATION
  10. PERCOCET [Concomitant]
     Indication: PAIN
     Dosage: PRN

REACTIONS (3)
  - BRONCHITIS [None]
  - CANDIDIASIS [None]
  - UPPER RESPIRATORY TRACT INFECTION [None]
